FAERS Safety Report 17157115 (Version 1)
Quarter: 2019Q4

REPORT INFORMATION
  Report Type: Report from Study
  Country: US (occurrence: US)
  Receive Date: 20191216
  Receipt Date: 20191216
  Transmission Date: 20200122
  Serious: No
  Sender: FDA-Public Use
  Company Number: US-SAGE-2019SAGE000080

PATIENT

DRUGS (1)
  1. ZULRESSO [Suspect]
     Active Substance: BREXANOLONE
     Indication: PERINATAL DEPRESSION
     Dosage: UNK
     Route: 042
     Dates: start: 20191118, end: 20191121

REACTIONS (3)
  - Back pain [Unknown]
  - Migraine [Recovered/Resolved]
  - Perinatal depression [Recovered/Resolved]

NARRATIVE: CASE EVENT DATE: 2019
